FAERS Safety Report 25210704 (Version 1)
Quarter: 2025Q2

REPORT INFORMATION
  Report Type: Report from Study
  Country: DE (occurrence: DE)
  Receive Date: 20250417
  Receipt Date: 20250417
  Transmission Date: 20250717
  Serious: Yes (Other)
  Sender: NOVARTIS
  Company Number: DE-002147023-NVSC2021DE040859

PATIENT
  Sex: Female

DRUGS (4)
  1. KISQALI [Suspect]
     Active Substance: RIBOCICLIB SUCCINATE
     Indication: Hormone receptor positive HER2 negative breast cancer
     Dosage: 200 MG, QD  (SCHEMA 21 DAYS INTAKE, 7 DAYS PAUSE)
     Route: 065
     Dates: start: 20190515, end: 20190709
  2. KISQALI [Suspect]
     Active Substance: RIBOCICLIB SUCCINATE
     Dosage: 400 MG, QD (ONGOING) (SCHEMA 21 DAYS INTAKE, 7 DAYS PAUSE)
     Route: 065
     Dates: start: 20190710
  3. FULVESTRANT [Suspect]
     Active Substance: FULVESTRANT
     Indication: Hormone receptor positive HER2 negative breast cancer
     Dosage: 500 MG, QD (DAILY DOSE) (ONGOING)
     Route: 030
     Dates: start: 20190514, end: 20201222
  4. AFINITOR [Concomitant]
     Active Substance: EVEROLIMUS
     Indication: Hormone receptor positive HER2 negative breast cancer
     Dosage: 5 MG, QD
     Route: 048
     Dates: start: 20210121, end: 20210129

REACTIONS (5)
  - Neutropenia [Recovered/Resolved]
  - Neutropenia [Recovered/Resolved]
  - Neutropenia [Recovered/Resolved]
  - Neutropenia [Recovered/Resolved]
  - Off label use [Unknown]

NARRATIVE: CASE EVENT DATE: 20190903
